FAERS Safety Report 8480112 (Version 2)
Quarter: 2012Q4

REPORT INFORMATION
  Report Type: 
  Country: JP (occurrence: JP)
  Receive Date: 20120328
  Receipt Date: 20121207
  Transmission Date: 20130627
  Serious: Yes (Hospitalization, Other)
  Sender: FDA-Public Use
  Company Number: JP-SANOFI-AVENTIS-2012SA018251

PATIENT
  Age: 84 Year
  Sex: Male

DRUGS (8)
  1. AMARYL [Suspect]
     Indication: DIABETES MELLITUS
     Route: 048
  2. PIOGLITAZONE [Suspect]
     Indication: DIABETES MELLITUS
     Route: 048
     Dates: start: 20120214
  3. MIGLITOL [Suspect]
     Indication: DIABETES MELLITUS
     Route: 048
  4. MITIGLINIDE [Suspect]
     Indication: DIABETES MELLITUS
     Route: 048
     Dates: start: 20120214
  5. JANUVIA [Suspect]
     Indication: DIABETES MELLITUS
     Route: 048
  6. PREDNISOLONE [Concomitant]
     Indication: INTERSTITIAL PNEUMONIA
     Dosage: pulse therapy
     Dates: start: 201201
  7. PREDNISOLONE [Concomitant]
     Indication: INTERSTITIAL PNEUMONIA
     Dosage: pulse therapy
  8. PREDNISOLONE [Concomitant]
     Indication: INTERSTITIAL PNEUMONIA

REACTIONS (7)
  - Toxic epidermal necrolysis [Recovered/Resolved]
  - Erythema [Recovered/Resolved]
  - Erythema [Recovered/Resolved]
  - Lip erosion [Recovered/Resolved]
  - Skin erosion [Recovered/Resolved]
  - Nikolsky^s sign [Recovered/Resolved]
  - Rash [Recovered/Resolved]
